FAERS Safety Report 18431613 (Version 1)
Quarter: 2020Q4

REPORT INFORMATION
  Report Type: Spontaneous
  Country: US (occurrence: US)
  Receive Date: 20201027
  Receipt Date: 20201027
  Transmission Date: 20210114
  Serious: Yes (Other)
  Sender: FDA-Public Use
  Company Number: None

PATIENT
  Sex: Female
  Weight: 69 kg

DRUGS (3)
  1. DROSPIRENON-ETHINYL ESTRADIOL [Suspect]
     Active Substance: DROSPIRENONE\ETHINYL ESTRADIOL
     Indication: DYSMENORRHOEA
     Dosage: ?          OTHER DOSE:3-0.02 MG;?
  2. DROSPIRENON-ETHINYL ESTRADIOL [Suspect]
     Active Substance: DROSPIRENONE\ETHINYL ESTRADIOL
     Indication: ACNE
     Dosage: ?          OTHER DOSE:3-0.02 MG;?
  3. DROSPIRENON-ETHINYL ESTRADIOL [Suspect]
     Active Substance: DROSPIRENONE\ETHINYL ESTRADIOL
     Indication: DYSMENORRHOEA

REACTIONS (3)
  - Abdominal discomfort [None]
  - Product substitution issue [None]
  - Acne [None]

NARRATIVE: CASE EVENT DATE: 202009
